FAERS Safety Report 16041971 (Version 1)
Quarter: 2019Q1

REPORT INFORMATION
  Report Type: Spontaneous
  Country: US (occurrence: US)
  Receive Date: 20190306
  Receipt Date: 20190306
  Transmission Date: 20190418
  Serious: No
  Sender: FDA-Public Use
  Company Number: US-AKORN PHARMACEUTICALS-2018AKN00785

PATIENT
  Age: 16 Year
  Sex: Male
  Weight: 80.27 kg

DRUGS (2)
  1. MYORISAN [Suspect]
     Active Substance: ISOTRETINOIN
     Indication: ACNE
     Dosage: 40 MG, 1X/DAY
     Dates: start: 20180110, end: 201805
  2. MYORISAN [Suspect]
     Active Substance: ISOTRETINOIN
     Dosage: 40 MG, 2X/DAY
     Dates: start: 201805, end: 20180529

REACTIONS (8)
  - Eye pain [Unknown]
  - Blepharitis [Unknown]
  - Epistaxis [Unknown]
  - Off label use [Recovered/Resolved]
  - Nasal dryness [Unknown]
  - Scar [Not Recovered/Not Resolved]
  - Drug effect incomplete [Unknown]
  - Dry eye [Unknown]

NARRATIVE: CASE EVENT DATE: 2018
